FAERS Safety Report 4299040-5 (Version None)
Quarter: 2004Q1

REPORT INFORMATION
  Report Type: 
  Country: None (occurrence: None)
  Receive Date: 20040217
  Receipt Date: 20040206
  Transmission Date: 20041129
  Serious: Yes (Other)
  Sender: FDA-Public Use
  Company Number: 200410630BCC

PATIENT
  Age: 80 Year
  Sex: Male
  Weight: 87.9978 kg

DRUGS (8)
  1. ALEVE (CAPLET) [Suspect]
     Indication: ARTHRITIS
     Dosage: 220 MG, QD, ORAL
     Route: 048
     Dates: start: 20040128, end: 20040206
  2. ALEVE (CAPLET) [Suspect]
     Indication: PAIN
     Dosage: 220 MG, QD, ORAL
     Route: 048
     Dates: start: 20040128, end: 20040206
  3. FOSAMAX [Concomitant]
  4. VITAMIN E [Concomitant]
  5. FLOMAX ^BOEHRINGER INGELHEIM^ [Concomitant]
  6. ACTOS [Concomitant]
  7. DIOVAN [Concomitant]
  8. GLUCOTROL XL [Concomitant]

REACTIONS (1)
  - BLOOD PRESSURE INCREASED [None]
